FAERS Safety Report 5644895-2 (Version None)
Quarter: 2008Q1

REPORT INFORMATION
  Report Type: 
  Country: None (occurrence: None)
  Receive Date: 20080229
  Receipt Date: 20071011
  Transmission Date: 20080703
  Serious: No
  Sender: FDA-Public Use
  Company Number: A0687191A

PATIENT
  Age: 52 Year
  Sex: Female

DRUGS (1)
  1. VALTREX [Suspect]
     Dosage: 1CAPL PER DAY
     Route: 048
     Dates: start: 20070401

REACTIONS (1)
  - PRURITUS [None]
